FAERS Safety Report 15275916 (Version 1)
Quarter: 2018Q3

REPORT INFORMATION
  Report Type: Spontaneous
  Country: US (occurrence: US)
  Receive Date: 20180727
  Receipt Date: 20180727
  Transmission Date: 20181010
  Serious: Yes (Hospitalization)
  Sender: FDA-Public Use
  Company Number: None

PATIENT
  Age: 68 Year
  Sex: Male

DRUGS (10)
  1. ACYCLOVIR. [Concomitant]
     Active Substance: ACYCLOVIR
  2. DIPHENHYDRAMINE. [Concomitant]
     Active Substance: DIPHENHYDRAMINE
  3. FLUCONAZOLE. [Concomitant]
     Active Substance: FLUCONAZOLE
  4. LEVOFLOXACIN. [Concomitant]
     Active Substance: LEVOFLOXACIN
  5. SENNA [Concomitant]
     Active Substance: SENNA LEAF\SENNOSIDES\SENNOSIDES A AND B
  6. AXICABTAGENE CILOLEUCEL [Suspect]
     Active Substance: AXICABTAGENE CILOLEUCEL
     Indication: NEOPLASM MALIGNANT
     Dosage: ?          OTHER DOSE:1 DOSE;?
     Route: 042
     Dates: start: 20180612
  7. ACETAMINOPHEN. [Concomitant]
     Active Substance: ACETAMINOPHEN
  8. DOCUSATE [Concomitant]
     Active Substance: DOCUSATE
  9. ENOXAPARIN [Concomitant]
     Active Substance: ENOXAPARIN
  10. NORMAL SALINE [Concomitant]
     Active Substance: SODIUM CHLORIDE

REACTIONS (7)
  - Pyrexia [None]
  - Chills [None]
  - Aphasia [None]
  - Neurotoxicity [None]
  - Hypoxia [None]
  - Cytokine release syndrome [None]
  - Depressed level of consciousness [None]

NARRATIVE: CASE EVENT DATE: 20180612
